FAERS Safety Report 7761367-X (Version None)
Quarter: 2011Q3

REPORT INFORMATION
  Report Type: 
  Country: None (occurrence: None)
  Receive Date: 20110920
  Receipt Date: 20110915
  Transmission Date: 20111222
  Serious: No
  Sender: FDA-Public Use
  Company Number: US-PFIZER INC-2011220118

PATIENT
  Sex: Male
  Weight: 72.562 kg

DRUGS (3)
  1. VITAMIN TAB [Concomitant]
     Dosage: UNK
  2. SIMVASTATIN [Suspect]
     Indication: BLOOD CHOLESTEROL INCREASED
     Dosage: 20 MG, DAILY
  3. LIPITOR [Suspect]
     Indication: BLOOD CHOLESTEROL INCREASED
     Dosage: 40 MG, DAILY
     Dates: start: 20110901, end: 20110901

REACTIONS (4)
  - HIGH DENSITY LIPOPROTEIN ABNORMAL [None]
  - CHEST PAIN [None]
  - BLOOD TRIGLYCERIDES ABNORMAL [None]
  - BLOOD CHOLESTEROL ABNORMAL [None]
